FAERS Safety Report 4318425-1 (Version None)
Quarter: 2004Q1

REPORT INFORMATION
  Report Type: 
  Country: None (occurrence: None)
  Receive Date: 20040315
  Receipt Date: 20040302
  Transmission Date: 20041129
  Serious: Yes (Hospitalization)
  Sender: FDA-Public Use
  Company Number: 04P-167-0252112-00

PATIENT
  Age: 55 Year
  Sex: Female
  Weight: 78 kg

DRUGS (8)
  1. SUPRALIP (TRICOR) (FENOFIBRATE) (FENOFIBRATE) [Suspect]
     Indication: HYPERTRIGLYCERIDAEMIA
     Dosage: 160 MG, 1 IN 1 D, ORAL
     Route: 048
     Dates: start: 20040105, end: 20040127
  2. ASPIRIN [Concomitant]
  3. LEVOTHYROXINE SODIUM [Concomitant]
  4. EVENING PRIMROSE OIL [Concomitant]
  5. FUCUS VESICOLOSUS [Concomitant]
  6. B-KOMPLEX ^LECIVA^ [Concomitant]
  7. FISH OIL [Concomitant]
  8. CALCIA [Concomitant]

REACTIONS (2)
  - ERYTHEMA MULTIFORME [None]
  - LEUKOCYTOCLASTIC VASCULITIS [None]
